FAERS Safety Report 11844167 (Version 3)
Quarter: 2016Q1

REPORT INFORMATION
  Report Type: Spontaneous
  Country: CA (occurrence: CA)
  Receive Date: 20151217
  Receipt Date: 20160114
  Transmission Date: 20160526
  Serious: Yes (Other)
  Sender: FDA-Public Use
  Company Number: CA-ROCHE-1677280

PATIENT
  Age: 66 Year
  Sex: Female

DRUGS (8)
  1. XOLAIR [Suspect]
     Active Substance: OMALIZUMAB
     Route: 058
     Dates: start: 20130416
  2. OMNARIS [Concomitant]
     Active Substance: CICLESONIDE
  3. SINGULAIR [Concomitant]
     Active Substance: MONTELUKAST SODIUM
  4. XOLAIR [Suspect]
     Active Substance: OMALIZUMAB
     Indication: ASTHMA
     Route: 058
     Dates: start: 20121221
  5. ADVAIR HFA [Concomitant]
     Active Substance: FLUTICASONE PROPIONATE\SALMETEROL XINAFOATE
  6. XOLAIR [Suspect]
     Active Substance: OMALIZUMAB
     Route: 058
     Dates: start: 20130514
  7. ALVESCO [Concomitant]
     Active Substance: CICLESONIDE
  8. VENTOLIN [Concomitant]
     Active Substance: ALBUTEROL SULFATE

REACTIONS (16)
  - Ligament sprain [Unknown]
  - Wheezing [Unknown]
  - Feeling abnormal [Unknown]
  - Nasal congestion [Unknown]
  - Breath sounds abnormal [Recovering/Resolving]
  - Asthma [Unknown]
  - Pyrexia [Unknown]
  - Injection site rash [Unknown]
  - Injection site erythema [Recovering/Resolving]
  - Forced expiratory volume decreased [Unknown]
  - Injection site urticaria [Recovering/Resolving]
  - Injection site pruritus [Recovering/Resolving]
  - Obstructive airways disorder [Unknown]
  - Nasopharyngitis [Unknown]
  - Drug ineffective [Unknown]
  - Cough [Unknown]

NARRATIVE: CASE EVENT DATE: 20130416
